FAERS Safety Report 8781282 (Version 3)
Quarter: 2012Q4

REPORT INFORMATION
  Report Type: 
  Country: US (occurrence: US)
  Receive Date: 20120913
  Receipt Date: 20121009
  Transmission Date: 20130627
  Serious: Yes (Other)
  Sender: FDA-Public Use
  Company Number: US-PFIZER INC-2012222979

PATIENT
  Age: 52 Year
  Sex: Male
  Weight: 91.61 kg

DRUGS (7)
  1. LYRICA [Suspect]
     Indication: FIBROMYALGIA
     Dosage: 4 capsules of 150mg in a day
     Route: 048
     Dates: start: 2004
  2. HYDROCODONE [Suspect]
     Indication: FIBROMYALGIA
     Dosage: 40mg in a day
     Route: 048
     Dates: start: 201009
  3. HYDROCODONE [Suspect]
     Dosage: 80mg in a day
     Route: 048
  4. HYDROCODONE [Suspect]
     Dosage: 40mg in a day
     Route: 048
     Dates: start: 201107
  5. HYDROCODONE [Suspect]
     Dosage: 5mg in a day
     Route: 048
  6. LEVOTHYROXINE [Concomitant]
     Dosage: 112 ug, daily
  7. TRAMADOL [Concomitant]
     Dosage: 50 mg, 2x/day

REACTIONS (8)
  - Impaired work ability [Recovered/Resolved]
  - Decreased activity [Recovered/Resolved]
  - Social avoidant behaviour [Recovered/Resolved]
  - Nausea [Recovered/Resolved]
  - Dysphagia [Recovered/Resolved]
  - Feeling abnormal [Recovered/Resolved]
  - Drug intolerance [Unknown]
  - Drug effect incomplete [Unknown]
